FAERS Safety Report 17820969 (Version 1)
Quarter: 2020Q2

REPORT INFORMATION
  Report Type: Spontaneous
  Country: CA (occurrence: CA)
  Receive Date: 20200525
  Receipt Date: 20200525
  Transmission Date: 20200714
  Serious: Yes (Other)
  Sender: FDA-Public Use
  Company Number: CA-NOVOPROD-728537

PATIENT
  Age: 77 Year
  Sex: Male

DRUGS (5)
  1. TRESIBA [Suspect]
     Active Substance: INSULIN DEGLUDEC
     Indication: PRODUCT USED FOR UNKNOWN INDICATION
     Dosage: 10 IU, QD (EVERY NIGHT)
     Route: 058
     Dates: start: 202003
  2. TRESIBA [Suspect]
     Active Substance: INSULIN DEGLUDEC
     Dosage: 20 IU, QD
     Route: 058
     Dates: start: 2020
  3. TRESIBA [Suspect]
     Active Substance: INSULIN DEGLUDEC
     Dosage: 12 IU, QD
     Route: 058
     Dates: start: 202003
  4. TRESIBA [Suspect]
     Active Substance: INSULIN DEGLUDEC
     Dosage: 16 IU, QD
     Route: 058
     Dates: start: 2020
  5. TRESIBA [Suspect]
     Active Substance: INSULIN DEGLUDEC
     Dosage: 14 IU, QD
     Route: 058
     Dates: start: 2020

REACTIONS (2)
  - Blood glucose increased [Unknown]
  - Ankle fracture [Unknown]
